FAERS Safety Report 25589476 (Version 2)
Quarter: 2025Q3

REPORT INFORMATION
  Report Type: Spontaneous
  Country: US (occurrence: US)
  Receive Date: 20250722
  Receipt Date: 20250825
  Transmission Date: 20251021
  Serious: No
  Sender: ALEXION PHARMACEUTICALS
  Company Number: US-AstraZeneca-CH-00900061AP

PATIENT
  Sex: Female

DRUGS (2)
  1. FASENRA [Suspect]
     Active Substance: BENRALIZUMAB
     Route: 065
  2. FASENRA [Suspect]
     Active Substance: BENRALIZUMAB

REACTIONS (7)
  - Administration site pain [Unknown]
  - Device leakage [Unknown]
  - Drug ineffective [Unknown]
  - Rhinorrhoea [Unknown]
  - Cough [Unknown]
  - Dyspnoea [Unknown]
  - Malaise [Unknown]
